FAERS Safety Report 6601761-3 (Version None)
Quarter: 2010Q1

REPORT INFORMATION
  Report Type: 
  Country: None (occurrence: None)
  Receive Date: 20100225
  Receipt Date: 20081202
  Transmission Date: 20100710
  Serious: Yes (Other)
  Sender: FDA-Public Use
  Company Number: US-BRISTOL-MYERS SQUIBB COMPANY-14440119

PATIENT
  Age: 48 Year
  Sex: Female

DRUGS (9)
  1. ORENCIA [Suspect]
     Indication: RHEUMATOID ARTHRITIS
     Route: 042
  2. PLAQUENIL [Concomitant]
  3. PREDNISONE [Concomitant]
  4. FOLINIC ACID [Concomitant]
  5. TYLENOL-500 [Concomitant]
  6. BONIVA [Concomitant]
  7. EXCEDRIN (MIGRAINE) [Concomitant]
  8. CELEBREX [Concomitant]
  9. NAPROXEN [Concomitant]

REACTIONS (4)
  - OEDEMA PERIPHERAL [None]
  - PAIN IN EXTREMITY [None]
  - PRURITUS [None]
  - SOMNOLENCE [None]
